FAERS Safety Report 23358149 (Version 1)
Quarter: 2024Q1

REPORT INFORMATION
  Report Type: Spontaneous
  Country: US (occurrence: US)
  Receive Date: 20240102
  Receipt Date: 20240102
  Transmission Date: 20240410
  Serious: Yes (Hospitalization)
  Sender: FDA-Public Use
  Company Number: US-OTSUKA-2023_034065

PATIENT
  Age: 51 Year
  Sex: Male

DRUGS (1)
  1. REXULTI [Suspect]
     Active Substance: BREXPIPRAZOLE
     Indication: Product used for unknown indication
     Dosage: UNK
     Route: 065

REACTIONS (6)
  - Mania [Unknown]
  - Nightmare [Unknown]
  - Weight decreased [Unknown]
  - Blood pressure increased [Unknown]
  - Tremor [Unknown]
  - Weight increased [Unknown]
